FAERS Safety Report 4906962-8 (Version None)
Quarter: 2006Q1

REPORT INFORMATION
  Report Type: 
  Country: None (occurrence: None)
  Receive Date: 20060207
  Receipt Date: 20060123
  Transmission Date: 20060701
  Serious: Yes (Hospitalization, Other)
  Sender: FDA-Public Use
  Company Number: JP200511001430

PATIENT
  Age: 47 Year
  Sex: Male

DRUGS (2)
  1. OLANZAPINE [Suspect]
     Dosage: 15MG, DAILY (1/D), UNK
  2. RISPERIDONE [Concomitant]

REACTIONS (19)
  - BLOOD CREATINE PHOSPHOKINASE INCREASED [None]
  - C-REACTIVE PROTEIN INCREASED [None]
  - CATATONIA [None]
  - CATHETER SEPSIS [None]
  - DECUBITUS ULCER [None]
  - DRUG INEFFECTIVE [None]
  - HAEMATEMESIS [None]
  - HYPERHIDROSIS [None]
  - HYPOPROTEINAEMIA [None]
  - LIVER DISORDER [None]
  - MUSCLE RIGIDITY [None]
  - NEUROLEPTIC MALIGNANT SYNDROME [None]
  - OXYGEN SATURATION DECREASED [None]
  - PNEUMONIA ASPIRATION [None]
  - PYREXIA [None]
  - STAPHYLOCOCCAL SEPSIS [None]
  - STUPOR [None]
  - TACHYCARDIA [None]
  - URINARY TRACT INFECTION [None]
